FAERS Safety Report 9618455 (Version 2)
Quarter: 2013Q4

REPORT INFORMATION
  Report Type: Spontaneous
  Country: US (occurrence: US)
  Receive Date: 20131014
  Receipt Date: 20131015
  Transmission Date: 20140711
  Serious: Yes (Other)
  Sender: FDA-Public Use
  Company Number: US-PFIZER INC-2013292016

PATIENT
  Sex: Male

DRUGS (4)
  1. LYRICA [Suspect]
     Dosage: UNK
  2. LYRICA [Suspect]
     Dosage: 200 MG, 3X/DAY
  3. LYRICA [Suspect]
     Dosage: UNK
  4. METHADONE [Concomitant]
     Dosage: UNK

REACTIONS (1)
  - Blindness [Unknown]
